FAERS Safety Report 6502249-0 (Version None)
Quarter: 2009Q4

REPORT INFORMATION
  Report Type: 
  Country: None (occurrence: None)
  Receive Date: 20091216
  Receipt Date: 20091029
  Transmission Date: 20100525
  Serious: No
  Sender: FDA-Public Use
  Company Number: US-ABBOTT-09P-163-0606243-00

PATIENT
  Sex: Male

DRUGS (3)
  1. TRILIPIX [Suspect]
     Indication: DYSLIPIDAEMIA
     Route: 048
     Dates: start: 20091004
  2. LEXAPRO [Concomitant]
     Indication: ANXIETY
     Route: 048
  3. ROPINOROLE [Concomitant]
     Indication: PARKINSON'S DISEASE
     Route: 048
     Dates: start: 20090701

REACTIONS (1)
  - BACK PAIN [None]
